FAERS Safety Report 9415082 (Version 1)
Quarter: 2013Q3

REPORT INFORMATION
  Report Type: Spontaneous
  Country: CO (occurrence: CO)
  Receive Date: 20130723
  Receipt Date: 20130723
  Transmission Date: 20140515
  Serious: Yes (Other)
  Sender: FDA-Public Use
  Company Number: CO-AMGEN-COLSP2012081723

PATIENT
  Age: 49 Year
  Sex: Female

DRUGS (6)
  1. ENBREL [Suspect]
     Indication: RHEUMATOID ARTHRITIS
     Dosage: 25 MG, WEEKLY (ON MONDAYS)
     Route: 058
     Dates: start: 20121119, end: 20121128
  2. FOLIC ACID [Concomitant]
     Indication: RHEUMATOID ARTHRITIS
     Dosage: 1 MG, 1X/DAY
     Route: 048
     Dates: start: 20120620
  3. METHOTREXATE [Concomitant]
     Indication: RHEUMATOID ARTHRITIS
     Dosage: 5 TABLETS OF 2.5 MG, WEEKLY ON SATURDAYS
     Route: 048
     Dates: start: 20120620
  4. ACETAMINOPHEN [Concomitant]
     Dosage: 300 MG, 3X/DAY
     Route: 048
     Dates: start: 20120620
  5. PREDNISOLON                        /00016201/ [Concomitant]
     Dosage: 5 MG, 1X/DAY
     Route: 048
     Dates: start: 20130620
  6. TRAZODONE [Concomitant]
     Dosage: 50 MG, 1X/DAY
     Route: 048
     Dates: start: 20120620

REACTIONS (12)
  - Loss of consciousness [Unknown]
  - Ovarian cyst [Unknown]
  - Dizziness [Unknown]
  - Vomiting [Unknown]
  - Asthenia [Unknown]
  - Fall [Unknown]
  - Immune system disorder [Unknown]
  - Headache [Recovered/Resolved]
  - Pain [Not Recovered/Not Resolved]
  - Pallor [Recovered/Resolved]
  - Eye disorder [Recovered/Resolved]
  - Depressed mood [Recovered/Resolved]
